FAERS Safety Report 6638389-5 (Version None)
Quarter: 2010Q1

REPORT INFORMATION
  Report Type: 
  Country: None (occurrence: None)
  Receive Date: 20100317
  Receipt Date: 20100308
  Transmission Date: 20100710
  Serious: Yes (Hospitalization)
  Sender: FDA-Public Use
  Company Number: B0638134A

PATIENT
  Sex: Male

DRUGS (7)
  1. WELLVONE [Suspect]
     Indication: DRUG USE FOR UNKNOWN INDICATION
     Dosage: 750MG PER DAY
     Route: 048
     Dates: start: 20100208, end: 20100209
  2. CEFTRIAXONE [Suspect]
     Indication: DRUG USE FOR UNKNOWN INDICATION
     Dosage: 1G PER DAY
     Route: 065
     Dates: start: 20100209, end: 20100209
  3. ZECLAR [Suspect]
     Indication: DRUG USE FOR UNKNOWN INDICATION
     Dosage: 500MG PER DAY
     Route: 048
     Dates: start: 20100208, end: 20100209
  4. NEXIUM [Suspect]
     Indication: DRUG USE FOR UNKNOWN INDICATION
     Route: 048
     Dates: start: 20100208, end: 20100209
  5. AMOXICILLIN [Concomitant]
     Route: 065
     Dates: start: 20100208
  6. TAZOCILLINE [Concomitant]
     Dosage: 4G PER DAY
     Route: 065
     Dates: start: 20100208, end: 20100209
  7. OXYGEN THERAPY [Concomitant]
     Dates: start: 20100208

REACTIONS (6)
  - PYREXIA [None]
  - RASH [None]
  - RASH MACULO-PAPULAR [None]
  - RASH PUSTULAR [None]
  - TOXIC SKIN ERUPTION [None]
  - URTICARIA [None]
